FAERS Safety Report 16657109 (Version 1)
Quarter: 2019Q3

REPORT INFORMATION
  Report Type: Spontaneous
  Country: US (occurrence: US)
  Receive Date: 20190731
  Receipt Date: 20190731
  Transmission Date: 20191004
  Serious: Yes (Life-Threatening, Hospitalization)
  Sender: FDA-Public Use
  Company Number: None

PATIENT
  Age: 62 Year
  Sex: Male
  Weight: 104.33 kg

DRUGS (2)
  1. MULTIVITAMIN [Suspect]
     Active Substance: VITAMINS
  2. MORPHINE [Suspect]
     Active Substance: MORPHINE

REACTIONS (6)
  - Loss of consciousness [None]
  - Device malfunction [None]
  - Euphoric mood [None]
  - Drug dose omission by device [None]
  - Respiratory depression [None]
  - Dialysis [None]

NARRATIVE: CASE EVENT DATE: 20190721
